FAERS Safety Report 4712620-5 (Version None)
Quarter: 2005Q3

REPORT INFORMATION
  Report Type: 
  Country: None (occurrence: None)
  Receive Date: 20050706
  Receipt Date: 20041121
  Transmission Date: 20060218
  Serious: Yes (Hospitalization)
  Sender: FDA-Public Use
  Company Number: US-2004-025697

PATIENT
  Age: 57 Year
  Sex: Male
  Weight: 93 kg

DRUGS (5)
  1. CAMPATH [Suspect]
     Indication: CHRONIC LYMPHOCYTIC LEUKAEMIA STAGE 2
     Dosage: COMPLETED 4 WEEKS OF THERAPY, UNK
     Route: 065
     Dates: start: 20040401, end: 20040430
  2. DIFLUCAN [Concomitant]
  3. ACYCLOVIR [Concomitant]
  4. ATOVAQUONE [Concomitant]
  5. PREDNISONE [Concomitant]

REACTIONS (1)
  - PNEUMONITIS [None]
